FAERS Safety Report 7513960-7 (Version None)
Quarter: 2011Q2

REPORT INFORMATION
  Report Type: 
  Country: None (occurrence: None)
  Receive Date: 20110531
  Receipt Date: 20110518
  Transmission Date: 20111010
  Serious: Yes (Other)
  Sender: FDA-Public Use
  Company Number: US-UCBSA-033542

PATIENT
  Sex: Female
  Weight: 69.85 kg

DRUGS (7)
  1. CIMZIA [Suspect]
     Indication: CROHN'S DISEASE
     Route: 058
     Dates: start: 20110408
  2. CIMZIA [Suspect]
     Dosage: MAINTENANCE SOLUTION
     Route: 058
  3. MULTIPLE VITAMINS [Concomitant]
     Dosage: 1 TABLET
  4. VITAMIN D [Concomitant]
     Dosage: 400 INTL UNITS TABLET
  5. PREDNISONE [Concomitant]
  6. SPRINTEC [Concomitant]
     Dosage: 35 MCG - 0.25 MG TABLET
  7. CALCIUM CARBONATE [Concomitant]

REACTIONS (4)
  - MOUTH ULCERATION [None]
  - ULCER [None]
  - ABSCESS INTESTINAL [None]
  - CROHN'S DISEASE [None]
